FAERS Safety Report 7093975-6 (Version None)
Quarter: 2010Q4

REPORT INFORMATION
  Report Type: 
  Country: None (occurrence: None)
  Receive Date: 20101101
  Receipt Date: 20101020
  Transmission Date: 20110411
  Serious: Yes (Other)
  Sender: FDA-Public Use
  Company Number: 734805

PATIENT
  Age: 5 Year
  Sex: Female
  Weight: 54.2048 kg

DRUGS (1)
  1. METHOTREXATE [Suspect]
     Indication: POLYARTHRITIS
     Dosage: 5 MG MILLIGRAM(S), 1 WEEK, SUBCUTANEOUS
     Route: 058
     Dates: start: 20060509

REACTIONS (1)
  - UVEITIS [None]
